FAERS Safety Report 14776683 (Version 1)
Quarter: 2018Q2

REPORT INFORMATION
  Report Type: Spontaneous
  Country: FR (occurrence: FR)
  Receive Date: 20180419
  Receipt Date: 20180419
  Transmission Date: 20180711
  Serious: Yes (Other)
  Sender: FDA-Public Use
  Company Number: FR-MERCK KGAA-2045991

PATIENT
  Age: 21 Year
  Sex: Male

DRUGS (2)
  1. NOVOTHYROX [Suspect]
     Active Substance: LEVOTHYROXINE SODIUM
     Route: 048
  2. NOVOTHYROX [Suspect]
     Active Substance: LEVOTHYROXINE SODIUM
     Indication: PRODUCT USED FOR UNKNOWN INDICATION

REACTIONS (25)
  - Musculoskeletal pain [None]
  - Sleep disorder [None]
  - Impaired work ability [None]
  - Vitamin D decreased [None]
  - Swelling [None]
  - Fall [None]
  - Blood thyroid stimulating hormone increased [None]
  - Abnormal behaviour [None]
  - Loss of personal independence in daily activities [None]
  - Mastication disorder [None]
  - Mean cell volume increased [None]
  - Angina pectoris [None]
  - Nervousness [None]
  - Agitation [None]
  - Fear of eating [None]
  - Epilepsy [None]
  - Abdominal pain upper [None]
  - Headache [None]
  - Urticaria [None]
  - Hypotonia [None]
  - Gait disturbance [None]
  - Oropharyngeal pain [None]
  - Myalgia [None]
  - Pruritus [None]
  - Balance disorder [None]

NARRATIVE: CASE EVENT DATE: 201702
